FAERS Safety Report 6474529-9 (Version None)
Quarter: 2009Q4

REPORT INFORMATION
  Report Type: 
  Country: None (occurrence: None)
  Receive Date: 20091204
  Receipt Date: 20091125
  Transmission Date: 20100525
  Serious: Yes (Death)
  Sender: FDA-Public Use
  Company Number: DK-PFIZER INC-2008076890

PATIENT
  Age: 39 Year
  Sex: Female

DRUGS (6)
  1. SOMATROPIN [Suspect]
     Indication: HYPOPITUITARISM
  2. CORODIL [Concomitant]
     Route: 048
     Dates: start: 20060131
  3. HYDROCORTISON [Concomitant]
     Route: 048
     Dates: start: 19880115
  4. TRISEKVENS [Concomitant]
     Route: 048
     Dates: start: 19830715
  5. ESTRADIOL [Concomitant]
  6. ELTROXIN [Concomitant]

REACTIONS (1)
  - DEATH [None]
